FAERS Safety Report 5642615-9 (Version None)
Quarter: 2008Q1

REPORT INFORMATION
  Report Type: 
  Country: None (occurrence: None)
  Receive Date: 20080226
  Receipt Date: 20080215
  Transmission Date: 20080703
  Serious: Yes (Hospitalization)
  Sender: FDA-Public Use
  Company Number: GXKR2008CZ01739

PATIENT
  Age: 35 Year
  Sex: Female

DRUGS (5)
  1. AMOKSIKLAV (NGX)(AMOXICILLIN, CLAVULANATE) UNKNOWN [Suspect]
     Indication: CHOLECYSTITIS CHRONIC
     Dosage: 1.2 G/DAY, INTRAVENOUS
     Route: 042
     Dates: start: 20080201
  2. QUAMATEL (FAMOTIDINE) TABLET [Concomitant]
  3. ENOXAPARIN SODIUM [Concomitant]
  4. DOLSIN (PETHIDINE HYDROCHLORIDE) [Concomitant]
  5. SYMBICORT [Concomitant]

REACTIONS (2)
  - HYPOTENSION [None]
  - RASH GENERALISED [None]
